FAERS Safety Report 9098223 (Version 3)
Quarter: 2013Q1

REPORT INFORMATION
  Report Type: Spontaneous
  Country: JP (occurrence: JP)
  Receive Date: 20130213
  Receipt Date: 20130306
  Transmission Date: 20140127
  Serious: Yes (Hospitalization)
  Sender: FDA-Public Use
  Company Number: JP-009507513-1302JPN004369

PATIENT
  Age: 63 Year
  Sex: Male
  Weight: 52 kg

DRUGS (8)
  1. JANUVIA TABLETS 50MG [Suspect]
     Indication: DIABETES MELLITUS
     Dosage: 50 MG, QD
     Route: 048
     Dates: start: 20120920, end: 20130204
  2. BI SIFROL [Suspect]
     Indication: PARKINSON^S DISEASE
     Dosage: 0.25 MG, QD
     Route: 048
     Dates: start: 201107
  3. NEODOPASTON [Suspect]
     Indication: PARKINSON^S DISEASE
     Dosage: 100 MG, BID
     Route: 048
     Dates: start: 201107
  4. TRYPTANOL [Suspect]
     Indication: FIBROMYALGIA
     Dosage: 20 MG, QD
     Route: 048
     Dates: start: 201107
  5. PANTOSIN [Concomitant]
     Indication: FIBROMYALGIA
     Dosage: 1 G, QD
     Route: 048
     Dates: start: 201107
  6. MUCODYNE [Concomitant]
     Indication: INTERSTITIAL LUNG DISEASE
     Dosage: 800 MG, TID
     Route: 048
     Dates: start: 201203
  7. MUCOSOLVAN [Concomitant]
     Indication: INTERSTITIAL LUNG DISEASE
     Dosage: 15 MG, TID
     Route: 048
     Dates: start: 201203
  8. PIRFENIDONE [Concomitant]
     Indication: INTERSTITIAL LUNG DISEASE
     Dosage: 500 MG, TID
     Route: 048
     Dates: start: 201203

REACTIONS (1)
  - Rhabdomyolysis [Recovered/Resolved]
